FAERS Safety Report 8515939-5 (Version None)
Quarter: 2012Q3

REPORT INFORMATION
  Report Type: 
  Country: None (occurrence: None)
  Receive Date: 20120705
  Receipt Date: 20120622
  Transmission Date: 20120928
  Serious: Yes (Other)
  Sender: FDA-Public Use
  Company Number: 2012SP035023

PATIENT
  Age: 54 Year
  Sex: Female
  Weight: 57 kg

DRUGS (5)
  1. REBETOL [Suspect]
     Indication: HEPATITIS C
     Dosage: 600 MG;QD;PO
     Route: 048
     Dates: start: 20120605, end: 20120609
  2. CANDESARTAN CILEXETIL [Concomitant]
  3. TELAVIC (ANTIVIRALS NOS) [Suspect]
     Indication: HEPATITIS C
     Dosage: 2250 MG;QD;PO
     Route: 048
     Dates: start: 20120605, end: 20120609
  4. PEG-INTRON [Suspect]
     Indication: HEPATITIS C
     Dosage: 1.5 MCG/KG;SC
     Route: 058
     Dates: start: 20120605, end: 20120609
  5. SELBEX [Concomitant]

REACTIONS (4)
  - ERYTHEMA [None]
  - PARAESTHESIA ORAL [None]
  - RASH [None]
  - PRURITUS [None]
